FAERS Safety Report 16385722 (Version 2)
Quarter: 2019Q3

REPORT INFORMATION
  Report Type: Spontaneous
  Country: VN (occurrence: VN)
  Receive Date: 20190603
  Receipt Date: 20190702
  Transmission Date: 20191004
  Serious: Yes (Other)
  Sender: FDA-Public Use
  Company Number: IND-VN-009507513-1905VNM012426

PATIENT
  Age: 47 Year
  Sex: Female
  Weight: 47 kg

DRUGS (1)
  1. ELONVA [Suspect]
     Active Substance: CORIFOLLITROPIN ALFA
     Indication: OVARIAN DISORDER
     Dosage: 150 MICROGRAM,SINGLE DOSE
     Dates: start: 20190315, end: 20190316

REACTIONS (1)
  - Headache [Recovered/Resolved]

NARRATIVE: CASE EVENT DATE: 20190316
